FAERS Safety Report 7595826-X (Version None)
Quarter: 2011Q3

REPORT INFORMATION
  Report Type: 
  Country: None (occurrence: None)
  Receive Date: 20110707
  Receipt Date: 20110705
  Transmission Date: 20111222
  Serious: No
  Sender: FDA-Public Use
  Company Number: US-PFIZER INC-2011151789

PATIENT
  Sex: Female
  Weight: 74.83 kg

DRUGS (2)
  1. LIPITOR [Suspect]
     Indication: BLOOD CHOLESTEROL INCREASED
     Dosage: 20 MG, DAILY
     Route: 048
     Dates: end: 20110703
  2. VOLTAREN [Concomitant]
     Indication: ARTHRITIS
     Dosage: 75 MG, DAILY
     Route: 048

REACTIONS (3)
  - TENDON DISORDER [None]
  - JAW DISORDER [None]
  - MUSCLE SPASMS [None]
